FAERS Safety Report 6415057-6 (Version None)
Quarter: 2009Q4

REPORT INFORMATION
  Report Type: 
  Country: None (occurrence: None)
  Receive Date: 20091021
  Receipt Date: 20091013
  Transmission Date: 20100525
  Serious: Yes (Other)
  Sender: FDA-Public Use
  Company Number: GXKR2009US11328

PATIENT
  Age: 36 Year
  Sex: Female

DRUGS (6)
  1. CARBOPLATIN [Suspect]
     Indication: SQUAMOUS CELL CARCINOMA
  2. TAXOL [Suspect]
     Indication: SQUAMOUS CELL CARCINOMA
  3. TACROLIMUS [Suspect]
     Indication: IMMUNOSUPPRESSION
     Dosage: SUBTHERAPEUTIC LEVELS, UNKNOWN
  4. PREDNISOLONE [Suspect]
     Indication: IMMUNOSUPPRESSION
     Dosage: SUBTHERAPEUTIC LEVELS, UNKNOWN
  5. SIROLIMUS [Suspect]
     Indication: IMMUNOSUPPRESSION
     Dosage: SUBTHERAPEUTIC LEVELS, UKNOWN
  6. CORTICOSTEROIDS (NO INGREDIENTS/SUBSTANCES) [Suspect]
     Indication: LIVER TRANSPLANT REJECTION
     Dosage: BOLUS

REACTIONS (6)
  - AUTOIMMUNE HEPATITIS [None]
  - COMPLICATIONS OF TRANSPLANTED LIVER [None]
  - HEPATIC FAILURE [None]
  - LIVER TRANSPLANT [None]
  - LIVER TRANSPLANT REJECTION [None]
  - SQUAMOUS CELL CARCINOMA [None]
